FAERS Safety Report 8347708-3 (Version None)
Quarter: 2012Q2

REPORT INFORMATION
  Report Type: 
  Country: None (occurrence: None)
  Receive Date: 20120507
  Receipt Date: 20120427
  Transmission Date: 20120825
  Serious: Yes (Disabling)
  Sender: FDA-Public Use
  Company Number: GER/UKI/12/0024112

PATIENT
  Age: 66 Year
  Sex: Male
  Weight: 105 kg

DRUGS (9)
  1. DIAZEPAM [Concomitant]
  2. MOXONIDINE (MOXONIDINE) [Concomitant]
  3. BENDROFLUMETHIAZIDE (BENDROFLUMETHIAZIDE) [Concomitant]
  4. PERINDOPRIL ERBUMINE [Concomitant]
  5. DIHYDROCODEINE BITARTRATE INJ [Concomitant]
  6. AMLODIPINE [Suspect]
     Indication: PRODUCT USED FOR UNKNOWN INDICATION
     Dates: start: 20120229
  7. IRBESARTAN (IRBESARTAN) [Concomitant]
  8. LEVOTHYROXINE SODIUM [Concomitant]
  9. TOPIRAMATE [Concomitant]

REACTIONS (4)
  - TREMOR [None]
  - LETHARGY [None]
  - FATIGUE [None]
  - PALPITATIONS [None]
